FAERS Safety Report 18995968 (Version 2)
Quarter: 2021Q2

REPORT INFORMATION
  Report Type: Report from Study
  Country: None (occurrence: US)
  Receive Date: 20210311
  Receipt Date: 20210512
  Transmission Date: 20210717
  Serious: Yes (Other)
  Sender: FDA-Public Use
  Company Number: US-ABBVIE-21K-163-3809868-00

PATIENT
  Sex: Female

DRUGS (1)
  1. HUMIRA [Suspect]
     Active Substance: ADALIMUMAB
     Indication: RHEUMATOID ARTHRITIS
     Route: 058

REACTIONS (8)
  - Carpal tunnel syndrome [Unknown]
  - Foot operation [Unknown]
  - Knee operation [Unknown]
  - Road traffic accident [Unknown]
  - Hernia [Unknown]
  - Neck surgery [Unknown]
  - Hip arthroplasty [Unknown]
  - Fall [Unknown]
